FAERS Safety Report 15251411 (Version 1)
Quarter: 2018Q3

REPORT INFORMATION
  Report Type: Spontaneous
  Country: US (occurrence: US)
  Receive Date: 20180807
  Receipt Date: 20180807
  Transmission Date: 20181010
  Serious: Yes (Hospitalization)
  Sender: FDA-Public Use
  Company Number: US-BAYER-2018-143685

PATIENT
  Age: 11 Year
  Sex: Female

DRUGS (2)
  1. CIPRO [Suspect]
     Active Substance: CIPROFLOXACIN HYDROCHLORIDE
     Indication: TULARAEMIA
     Dosage: UNK
  2. LEVOFLOXACIN. [Concomitant]
     Active Substance: LEVOFLOXACIN
     Indication: ERYTHEMA MULTIFORME
     Dosage: UNK

REACTIONS (3)
  - Idiopathic intracranial hypertension [Recovered/Resolved]
  - Off label use [None]
  - Product use in unapproved indication [None]
